FAERS Safety Report 6530356-5 (Version None)
Quarter: 2010Q1

REPORT INFORMATION
  Report Type: 
  Country: None (occurrence: None)
  Receive Date: 20100107
  Receipt Date: 20091230
  Transmission Date: 20100710
  Serious: Yes (Hospitalization)
  Sender: FDA-Public Use
  Company Number: US-BAXTER-2009BH014323

PATIENT
  Age: 52 Year
  Sex: Female
  Weight: 53 kg

DRUGS (5)
  1. VANCOMYCIN HCL [Suspect]
     Indication: OSTEOMYELITIS
     Route: 042
     Dates: start: 20080801, end: 20080801
  2. MEROPENEM [Suspect]
     Indication: OSTEOMYELITIS
     Route: 042
     Dates: start: 20080801, end: 20080801
  3. HYDROCODONE BITARTRATE [Concomitant]
     Indication: POSTOPERATIVE ANALGESIA
     Route: 048
     Dates: start: 20080101
  4. OXYCODONE HCL [Concomitant]
     Indication: POSTOPERATIVE ANALGESIA
     Route: 048
     Dates: start: 20080101
  5. CODEINE [Concomitant]
     Indication: POSTOPERATIVE ANALGESIA
     Route: 048
     Dates: start: 20080101

REACTIONS (5)
  - ARTHRALGIA [None]
  - CARDIAC DISORDER [None]
  - DRUG HYPERSENSITIVITY [None]
  - HEART RATE ABNORMAL [None]
  - MITRAL VALVE PROLAPSE [None]
